FAERS Safety Report 7902153-7 (Version None)
Quarter: 2011Q4

REPORT INFORMATION
  Report Type: 
  Country: None (occurrence: None)
  Receive Date: 20111108
  Receipt Date: 20111103
  Transmission Date: 20120403
  Serious: Yes (Other)
  Sender: FDA-Public Use
  Company Number: US-BAYER-2011-107148

PATIENT
  Sex: Female

DRUGS (1)
  1. BETASERON [Suspect]
     Indication: MULTIPLE SCLEROSIS
     Dosage: 0.3 MG, QOD
     Route: 058
     Dates: start: 20111007, end: 20111025

REACTIONS (6)
  - MOBILITY DECREASED [None]
  - DYSPNOEA [None]
  - VOMITING [None]
  - INSOMNIA [None]
  - DIARRHOEA [None]
  - APHAGIA [None]
